FAERS Safety Report 4579498-4 (Version None)
Quarter: 2005Q1

REPORT INFORMATION
  Report Type: 
  Country: None (occurrence: None)
  Receive Date: 20050209
  Receipt Date: 20050128
  Transmission Date: 20050727
  Serious: Yes (Life-Threatening)
  Sender: FDA-Public Use
  Company Number: S05-UKI-00435-01

PATIENT
  Age: 45 Year
  Sex: Female

DRUGS (2)
  1. ESCITALOPRAM OXALATE [Suspect]
     Indication: DEPRESSION
     Dosage: 10 MG QD PO
     Route: 048
     Dates: start: 20041207, end: 20041229
  2. DIAZEPAM [Concomitant]

REACTIONS (4)
  - DEPRESSED MOOD [None]
  - MENTAL IMPAIRMENT [None]
  - NEGATIVISM [None]
  - SELF-INJURIOUS IDEATION [None]
